FAERS Safety Report 18360645 (Version 1)
Quarter: 2020Q4

REPORT INFORMATION
  Report Type: Spontaneous
  Country: US (occurrence: US)
  Receive Date: 20201008
  Receipt Date: 20201008
  Transmission Date: 20210114
  Serious: No
  Sender: FDA-Public Use
  Company Number: US-ROMARKLABS-2019-US-000250

PATIENT
  Age: 44 Year
  Sex: Male

DRUGS (3)
  1. CEFDNIR [Concomitant]
     Indication: PRODUCT USED FOR UNKNOWN INDICATION
  2. ALINIA [Suspect]
     Active Substance: NITAZOXANIDE
     Indication: LYME DISEASE
     Dosage: TAKE 1 TABLET BY MOUTH TWICE A DAY
     Route: 048
     Dates: start: 201911
  3. DOXYCYCLINE HYCLATE. [Concomitant]
     Active Substance: DOXYCYCLINE HYCLATE
     Indication: PRODUCT USED FOR UNKNOWN INDICATION

REACTIONS (1)
  - Diarrhoea [Unknown]

NARRATIVE: CASE EVENT DATE: 201911
